FAERS Safety Report 21246134 (Version 1)
Quarter: 2022Q3

REPORT INFORMATION
  Report Type: Other
  Country: US (occurrence: None)
  Receive Date: 20220824
  Receipt Date: 20220824
  Transmission Date: 20221026
  Serious: Yes (Other)
  Sender: FDA-Public Use
  Company Number: US-ROCHE-3165472

PATIENT
  Age: 67 Year
  Sex: Female
  Weight: 88.530 kg

DRUGS (2)
  1. OCREVUS [Suspect]
     Active Substance: OCRELIZUMAB
     Indication: Relapsing-remitting multiple sclerosis
     Dosage: YES, IV INFUSION 600MG Q 6 MONTHS, THEN INFUSE 300 MG IV X DOSE THEN REPEAT IN 2 WEEKS, DATE OF TREA
     Route: 042
     Dates: start: 2019
  2. ELIQUIS [Concomitant]
     Active Substance: APIXABAN
     Indication: Cerebrovascular accident

REACTIONS (3)
  - COVID-19 [Recovered/Resolved]
  - Palpitations [Not Recovered/Not Resolved]
  - Cerebrovascular accident [Recovered/Resolved]

NARRATIVE: CASE EVENT DATE: 20220201
